FAERS Safety Report 14576953 (Version 1)
Quarter: 2018Q1

REPORT INFORMATION
  Report Type: Spontaneous
  Country: US (occurrence: US)
  Receive Date: 20180225
  Receipt Date: 20180225
  Transmission Date: 20180509
  Serious: No
  Sender: FDA-Public Use
  Company Number: None

PATIENT
  Age: 71 Year
  Sex: Female
  Weight: 69.75 kg

DRUGS (12)
  1. HYDROCHLOROTHIAZIDE. [Concomitant]
     Active Substance: HYDROCHLOROTHIAZIDE
  2. LEVOTHYROXINE. [Concomitant]
     Active Substance: LEVOTHYROXINE
  3. METHOTREXATE. [Concomitant]
     Active Substance: METHOTREXATE
  4. ZOLOFT [Suspect]
     Active Substance: SERTRALINE HYDROCHLORIDE
     Indication: DEPRESSION
     Dosage: ?          QUANTITY:3 TABLET(S);?
     Route: 048
     Dates: start: 20170806, end: 20180203
  5. FOLIC ACID. [Concomitant]
     Active Substance: FOLIC ACID
  6. GLUCOSAMINE SULFATE [Concomitant]
     Active Substance: GLUCOSAMINE SULFATE
  7. FENOFIBRATE. [Concomitant]
     Active Substance: FENOFIBRATE
  8. VERAPAMIL [Concomitant]
     Active Substance: VERAPAMIL HYDROCHLORIDE
  9. FISH OIL [Concomitant]
     Active Substance: FISH OIL
  10. RED YEAST RICE [Concomitant]
     Active Substance: DIETARY SUPPLEMENT
  11. VITAMIN D [Concomitant]
     Active Substance: CHOLECALCIFEROL
  12. CITRATE [Concomitant]
     Active Substance: CITRIC ACID MONOHYDRATE

REACTIONS (16)
  - Drug ineffective [None]
  - Therapy change [None]
  - Frequent bowel movements [None]
  - Urinary incontinence [None]
  - Weight increased [None]
  - Alopecia [None]
  - Hallucination, auditory [None]
  - Bronchospasm [None]
  - Ageusia [None]
  - Sleep disorder [None]
  - Cough [None]
  - Suicidal ideation [None]
  - Abdominal pain [None]
  - Asthenia [None]
  - Balance disorder [None]
  - Visual impairment [None]

NARRATIVE: CASE EVENT DATE: 20171020
